FAERS Safety Report 12982833 (Version 1)
Quarter: 2016Q4

REPORT INFORMATION
  Report Type: Spontaneous
  Country: JP (occurrence: JP)
  Receive Date: 20161129
  Receipt Date: 20161129
  Transmission Date: 20170207
  Serious: Yes (Death, Hospitalization)
  Sender: FDA-Public Use
  Company Number: JP-PFIZER INC-2016547686

PATIENT
  Age: 9 Decade

DRUGS (1)
  1. INLYTA [Suspect]
     Active Substance: AXITINIB
     Indication: RENAL CANCER METASTATIC
     Dosage: 4 MG, DAILY

REACTIONS (3)
  - Neoplasm progression [Unknown]
  - Respiratory failure [Fatal]
  - Pneumonia bacterial [Fatal]
